FAERS Safety Report 8005018-8 (Version None)
Quarter: 2011Q4

REPORT INFORMATION
  Report Type: 
  Country: None (occurrence: None)
  Receive Date: 20111223
  Receipt Date: 20111220
  Transmission Date: 20120403
  Serious: Yes (Hospitalization)
  Sender: FDA-Public Use
  Company Number: US-AMGEN-USASP2011067824

PATIENT
  Age: 50 Year
  Sex: Female

DRUGS (2)
  1. ENBREL [Suspect]
     Indication: PSORIATIC ARTHROPATHY
     Dosage: 50 MG, QWK
     Dates: start: 20080101, end: 20090101
  2. ENBREL [Suspect]
     Indication: PSORIASIS

REACTIONS (4)
  - LOWER LIMB FRACTURE [None]
  - PSORIASIS [None]
  - FALL [None]
  - PSORIATIC ARTHROPATHY [None]
